FAERS Safety Report 9371469 (Version 1)
Quarter: 2013Q2

REPORT INFORMATION
  Report Type: Spontaneous
  Country: US (occurrence: None)
  Receive Date: 20130626
  Receipt Date: 20130626
  Transmission Date: 20140414
  Serious: No
  Sender: FDA-Public Use
  Company Number: None

PATIENT
  Age: 28 Year
  Sex: Female
  Weight: 55.8 kg

DRUGS (1)
  1. RISPERIDONE [Suspect]
     Route: 048
     Dates: start: 20130618, end: 20130619

REACTIONS (2)
  - Insomnia [None]
  - Irritability [None]
